FAERS Safety Report 9648004 (Version 1)
Quarter: 2013Q4

REPORT INFORMATION
  Report Type: Spontaneous
  Country: US (occurrence: US)
  Receive Date: 20131028
  Receipt Date: 20131028
  Transmission Date: 20140711
  Serious: No
  Sender: FDA-Public Use
  Company Number: US-PFIZER INC-2013303852

PATIENT
  Age: 56 Year
  Sex: Male

DRUGS (3)
  1. LYRICA [Suspect]
     Indication: MIGRAINE
     Dosage: 150 MG, 3X/DAY
     Route: 048
     Dates: start: 201306, end: 2013
  2. LYRICA [Suspect]
     Dosage: 75 MG, 3X/DAY
     Route: 048
     Dates: start: 2013
  3. PERCOCET [Concomitant]
     Dosage: UNK, AS NEEDED

REACTIONS (2)
  - Wrong technique in drug usage process [Unknown]
  - Dizziness [Recovered/Resolved]
